FAERS Safety Report 6696633-2 (Version None)
Quarter: 2010Q2

REPORT INFORMATION
  Report Type: 
  Country: None (occurrence: None)
  Receive Date: 20100426
  Receipt Date: 20100423
  Transmission Date: 20101027
  Serious: Yes (Other)
  Sender: FDA-Public Use
  Company Number: D0067142A

PATIENT
  Sex: Female

DRUGS (2)
  1. LAMICTAL [Suspect]
     Dosage: 25MG PER DAY
     Route: 048
     Dates: start: 20090928, end: 20100403
  2. NORSET [Concomitant]
     Indication: DEPRESSION
     Route: 065

REACTIONS (10)
  - ARTHRALGIA [None]
  - ARTHRITIS [None]
  - BLOOD TEST ABNORMAL [None]
  - CONSTIPATION [None]
  - HEPATIC ENZYME INCREASED [None]
  - NAUSEA [None]
  - SLEEP DISORDER [None]
  - TREMOR [None]
  - VITAMIN D DEFICIENCY [None]
  - VOMITING [None]
